FAERS Safety Report 8935819 (Version 1)
Quarter: 2012Q4

REPORT INFORMATION
  Report Type: 
  Country: US (occurrence: US)
  Receive Date: 20121130
  Receipt Date: 20121130
  Transmission Date: 20130627
  Serious: Yes (Hospitalization)
  Sender: FDA-Public Use
  Company Number: US-BRISTOL-MYERS SQUIBB COMPANY-17145418

PATIENT
  Age: 61 Year
  Sex: Female
  Weight: 58.05 kg

DRUGS (16)
  1. SPRYCEL [Suspect]
     Indication: ACUTE LYMPHOCYTIC LEUKAEMIA
     Route: 048
     Dates: start: 20120701
  2. ACYCLOVIR [Concomitant]
  3. ALBUTEROL [Concomitant]
  4. CALCIUM + VITAMIN D [Concomitant]
  5. DEXAMETHASONE [Concomitant]
  6. DOCUSATE [Concomitant]
  7. FLUCONAZOLE [Concomitant]
  8. LEVOFLOXACIN [Concomitant]
  9. MEGESTROL [Concomitant]
  10. NUCYNTA [Concomitant]
  11. ONDANSETRON [Concomitant]
  12. SENNA [Concomitant]
  13. ZOLPIDEM [Concomitant]
  14. TUSSIN DM [Concomitant]
  15. TMP-SMP [Concomitant]
  16. SERTRALINE [Concomitant]

REACTIONS (2)
  - Pleural effusion [Unknown]
  - Laboratory test abnormal [Unknown]
